FAERS Safety Report 6354178-3 (Version None)
Quarter: 2009Q3

REPORT INFORMATION
  Report Type: 
  Country: None (occurrence: None)
  Receive Date: 20090914
  Receipt Date: 20090908
  Transmission Date: 20100115
  Serious: Yes (Other)
  Sender: FDA-Public Use
  Company Number: US-ROCHE-655750

PATIENT
  Age: 73 Year
  Sex: Female

DRUGS (2)
  1. KLONOPIN [Suspect]
     Indication: ANXIETY
     Dosage: 0.25 MG AT HS, OTHER INDICATION: FIBROMYALGIA, WAS INTERRUPTED IN BETWEEN
     Route: 065
  2. CLONAZEPAM [Suspect]
     Indication: ANXIETY
     Dosage: OTHER INDICATION: FIBROMYALGIA
     Route: 065

REACTIONS (7)
  - BALANCE DISORDER [None]
  - BREAST CANCER [None]
  - CLUMSINESS [None]
  - DRUG TOLERANCE [None]
  - MEMORY IMPAIRMENT [None]
  - NIGHTMARE [None]
  - PAIN [None]
